FAERS Safety Report 9330684 (Version 2)
Quarter: 2013Q4

REPORT INFORMATION
  Report Type: Spontaneous
  Country: MY (occurrence: MY)
  Receive Date: 20130605
  Receipt Date: 20131227
  Transmission Date: 20140711
  Serious: Yes (Other)
  Sender: FDA-Public Use
  Company Number: MY-ROCHE-1232230

PATIENT
  Age: 28 Year
  Sex: Female

DRUGS (1)
  1. LUCENTIS [Suspect]
     Indication: MACULAR OEDEMA
     Dosage: 0.5 MG/0.05 ML
     Route: 050

REACTIONS (4)
  - Endophthalmitis [Unknown]
  - Anterior chamber flare [Unknown]
  - Blindness [Unknown]
  - Retinal detachment [Unknown]
